FAERS Safety Report 8420304-5 (Version None)
Quarter: 2012Q2

REPORT INFORMATION
  Report Type: 
  Country: None (occurrence: None)
  Receive Date: 20120607
  Receipt Date: 20120530
  Transmission Date: 20120825
  Serious: Yes (Death, Hospitalization)
  Sender: FDA-Public Use
  Company Number: PH-BAXTER-2012BAX007190

PATIENT
  Sex: Female

DRUGS (6)
  1. AMINOLEBAN [Concomitant]
  2. PANTOPRAZOLE SODIUM [Concomitant]
  3. KEPPRA [Concomitant]
  4. DIANEAL PD-2 W/ DEXTROSE 1.5% [Suspect]
     Route: 033
     Dates: start: 20100326
  5. CALCIUM CARBONATE [Concomitant]
  6. GLUCOBAY [Concomitant]

REACTIONS (3)
  - HEPATIC CIRRHOSIS [None]
  - HAEMORRHAGE [None]
  - HAEMATEMESIS [None]
